FAERS Safety Report 10144033 (Version 1)
Quarter: 2014Q2

REPORT INFORMATION
  Report Type: Spontaneous
  Country: US (occurrence: US)
  Receive Date: 20140430
  Receipt Date: 20140430
  Transmission Date: 20141212
  Serious: No
  Sender: FDA-Public Use
  Company Number: US-B.I. PHARMACEUTICALS,INC./RIDGEFIELD-2014-BI-18278BP

PATIENT
  Age: 77 Year
  Sex: Female
  Weight: 72 kg

DRUGS (4)
  1. PRADAXA [Suspect]
     Indication: ATRIAL FIBRILLATION
     Dosage: 300 MG
     Route: 048
     Dates: start: 2013
  2. PROTONIX [Concomitant]
     Indication: GASTRIC ULCER
     Dosage: 40 MG
     Route: 048
  3. BYSTOLIC [Concomitant]
     Indication: HYPERTENSION
     Dosage: 5 MG
     Route: 048
  4. CARTIA [Concomitant]
     Indication: HYPERTENSION
     Dosage: 120 MG
     Route: 048

REACTIONS (6)
  - Joint stiffness [Not Recovered/Not Resolved]
  - Chest discomfort [Not Recovered/Not Resolved]
  - Dyspnoea [Not Recovered/Not Resolved]
  - Weight increased [Not Recovered/Not Resolved]
  - Dizziness [Not Recovered/Not Resolved]
  - Abdominal discomfort [Not Recovered/Not Resolved]
